FAERS Safety Report 7029723-5 (Version None)
Quarter: 2010Q4

REPORT INFORMATION
  Report Type: 
  Country: None (occurrence: None)
  Receive Date: 20101005
  Receipt Date: 20101005
  Transmission Date: 20110411
  Serious: Yes (Other)
  Sender: FDA-Public Use
  Company Number: None

PATIENT
  Age: 50 Year
  Sex: Female
  Weight: 71.6683 kg

DRUGS (1)
  1. ICY HOT POWER GEL MENTHOL 16% CHATTEM, INC. [Suspect]
     Indication: MYALGIA
     Dosage: APPLY GENEROUSLY 3 TO 4 TIMES PER D OTHER
     Route: 050
     Dates: start: 20100923, end: 20100926

REACTIONS (2)
  - BURNS SECOND DEGREE [None]
  - SCAR [None]
